FAERS Safety Report 22536843 (Version 4)
Quarter: 2023Q2

REPORT INFORMATION
  Report Type: Spontaneous
  Country: US (occurrence: US)
  Receive Date: 20230608
  Receipt Date: 20230626
  Transmission Date: 20230721
  Serious: No
  Sender: FDA-Public Use
  Company Number: US-BAYER-2023A077792

PATIENT
  Age: 16 Year
  Sex: Male

DRUGS (2)
  1. ALKA-SELTZER PLUS MAXIMUM STRENGTH COUGH AND MUCUS DM [Suspect]
     Active Substance: DEXTROMETHORPHAN HYDROBROMIDE\GUAIFENESIN
     Dosage: 4 TO 6 TABLETS IN A 24 HOUR
     Route: 048
     Dates: start: 20230530, end: 20230531
  2. ALKA-SELTZER PLUS MAXIMUM STRENGTH SINUS, CONGESTION AND PAIN POWER MA [Suspect]
     Active Substance: ACETAMINOPHEN\DEXTROMETHORPHAN HYDROBROMIDE\PHENYLEPHRINE HYDROCHLORIDE
     Indication: Pain
     Route: 048
     Dates: start: 20230530, end: 20230531

REACTIONS (9)
  - Panic attack [Not Recovered/Not Resolved]
  - Somnolence [Not Recovered/Not Resolved]
  - Dyspnoea [Not Recovered/Not Resolved]
  - Speech disorder [Not Recovered/Not Resolved]
  - Confusional state [Not Recovered/Not Resolved]
  - Palpitations [Not Recovered/Not Resolved]
  - Overdose [Not Recovered/Not Resolved]
  - Expired product administered [None]
  - Product commingling [None]

NARRATIVE: CASE EVENT DATE: 20230531
